FAERS Safety Report 6470288-4 (Version None)
Quarter: 2009Q4

REPORT INFORMATION
  Report Type: 
  Country: None (occurrence: None)
  Receive Date: 20091203
  Receipt Date: 20091126
  Transmission Date: 20100525
  Serious: Yes (Hospitalization, Other)
  Sender: FDA-Public Use
  Company Number: JP-BAYER-200911123BYL

PATIENT
  Age: 56 Year
  Sex: Male
  Weight: 78 kg

DRUGS (10)
  1. NEXAVAR [Suspect]
     Indication: RENAL CELL CARCINOMA
     Dosage: TOTAL DAILY DOSE: 400 MG  UNIT DOSE: 200 MG
     Route: 048
     Dates: start: 20090217, end: 20090226
  2. NEXAVAR [Suspect]
     Dosage: TOTAL DAILY DOSE: 400 MG  UNIT DOSE: 200 MG
     Route: 048
     Dates: start: 20090312
  3. NEXAVAR [Suspect]
     Dosage: TOTAL DAILY DOSE: 800 MG  UNIT DOSE: 200 MG
     Route: 048
     Dates: start: 20090227, end: 20090311
  4. NEXAVAR [Suspect]
     Dosage: TOTAL DAILY DOSE: 800 MG  UNIT DOSE: 200 MG
     Route: 048
     Dates: start: 20090206
  5. OLMETEC [Concomitant]
     Route: 048
  6. FAMOSTAGINE [Concomitant]
     Route: 048
     Dates: start: 20090205
  7. AMLODIPINE [Concomitant]
     Route: 048
     Dates: start: 20090202, end: 20090226
  8. MUCOSTA [Concomitant]
     Route: 048
     Dates: start: 20090205
  9. SOLANAX [Concomitant]
     Route: 048
     Dates: start: 20090205
  10. ZYLORIC [Concomitant]
     Route: 048
     Dates: start: 20090205

REACTIONS (16)
  - ALOPECIA [None]
  - BLOOD CHOLESTEROL INCREASED [None]
  - BLOOD LACTATE DEHYDROGENASE INCREASED [None]
  - ERYTHEMA [None]
  - ERYTHEMA MULTIFORME [None]
  - HEADACHE [None]
  - HYPERTENSION [None]
  - HYPERURICAEMIA [None]
  - LIVER DISORDER [None]
  - PALMAR-PLANTAR ERYTHRODYSAESTHESIA SYNDROME [None]
  - PANCREATIC ENZYMES INCREASED [None]
  - PARAESTHESIA [None]
  - PLATELET COUNT DECREASED [None]
  - PROTEINURIA [None]
  - RENAL IMPAIRMENT [None]
  - WHITE BLOOD CELL COUNT DECREASED [None]
